FAERS Safety Report 12211991 (Version 2)
Quarter: 2016Q2

REPORT INFORMATION
  Report Type: Spontaneous
  Country: US (occurrence: US)
  Receive Date: 20160325
  Receipt Date: 20160614
  Transmission Date: 20160815
  Serious: Yes (Death, Other)
  Sender: FDA-Public Use
  Company Number: US-BAUSCH-BL-2016-006992

PATIENT
  Age: 77 Year
  Sex: Male

DRUGS (11)
  1. RELISTOR [Suspect]
     Active Substance: METHYLNALTREXONE BROMIDE
     Dosage: NO MORE FREQUENTLY THAN ONE DOSE IN A 24-HOUR PERIOD
     Route: 058
  2. DULCOLAX NOS [Concomitant]
     Active Substance: BISACODYL OR DOCUSATE SODIUM
     Dosage: 1 SUPPOSITORY EVERY OTHER DAY
     Route: 054
     Dates: start: 2012
  3. LEXAPRO [Concomitant]
     Active Substance: ESCITALOPRAM OXALATE
     Indication: DEPRESSION
     Route: 048
     Dates: start: 2012
  4. ONDANESTRON [Concomitant]
     Indication: NAUSEA
     Dosage: 1 TABLET EVERY 8 HOURS AS NEEDED
     Route: 048
     Dates: start: 2016
  5. DULCOLAX NOS [Concomitant]
     Active Substance: BISACODYL OR DOCUSATE SODIUM
     Indication: CONSTIPATION
     Route: 048
     Dates: start: 2012
  6. OXYCODONE [Concomitant]
     Active Substance: OXYCODONE
     Indication: PAIN
     Dosage: 4 TO 6 TABLETS A DAY AS NEEDED
     Route: 048
  7. OMEPRAZOLE. [Concomitant]
     Active Substance: OMEPRAZOLE
     Indication: GASTROOESOPHAGEAL REFLUX DISEASE
     Route: 048
     Dates: start: 2016
  8. COLACE [Concomitant]
     Active Substance: DOCUSATE SODIUM
     Indication: CONSTIPATION
     Route: 048
     Dates: start: 2015
  9. RELISTOR [Suspect]
     Active Substance: METHYLNALTREXONE BROMIDE
     Indication: CONSTIPATION
     Dosage: AS NEEDED NOT MORE THAN 1 INJECTION EVERY OTHER DAY
     Dates: start: 201511
  10. OPDIVO [Suspect]
     Active Substance: NIVOLUMAB
     Indication: COLON CANCER
     Route: 042
     Dates: start: 2016, end: 201603
  11. LYRICA [Concomitant]
     Active Substance: PREGABALIN
     Indication: NEUROPATHY PERIPHERAL
     Route: 048
     Dates: start: 2012

REACTIONS (7)
  - Death [Fatal]
  - Nausea [Not Recovered/Not Resolved]
  - Gastrooesophageal reflux disease [Not Recovered/Not Resolved]
  - Hospice care [Unknown]
  - Expired product administered [Unknown]
  - Metastases to lymph nodes [Unknown]
  - Blood count abnormal [Not Recovered/Not Resolved]

NARRATIVE: CASE EVENT DATE: 2015
